FAERS Safety Report 9028509 (Version 2)
Quarter: 2015Q2

REPORT INFORMATION
  Report Type: Report from Study
  Country: US (occurrence: US)
  Receive Date: 20130124
  Receipt Date: 20150416
  Transmission Date: 20150821
  Serious: Yes (Death, Hospitalization, Other)
  Sender: FDA-Public Use
  Company Number: US-ROCHE-1179151

PATIENT
  Age: 58 Year
  Sex: Male
  Weight: 78.6 kg

DRUGS (22)
  1. RITUXIMAB [Suspect]
     Active Substance: RITUXIMAB
     Indication: CHRONIC GRAFT VERSUS HOST DISEASE
     Dosage: FORM 100 MG AND 500 MG
     Route: 065
  2. SIROLIMUS. [Concomitant]
     Active Substance: SIROLIMUS
     Route: 065
     Dates: start: 20130101
  3. ACYCLOVIR. [Concomitant]
     Active Substance: ACYCLOVIR
     Route: 050
     Dates: start: 20130103
  4. PRILOSEC [Concomitant]
     Active Substance: OMEPRAZOLE MAGNESIUM
     Route: 065
  5. ISOPTO TEARS [Concomitant]
     Active Substance: HYPROMELLOSE 2910 (4000 MPA.S)
     Dosage: 1 DROP
     Route: 050
     Dates: start: 20130104
  6. TACROLIMUS. [Concomitant]
     Active Substance: TACROLIMUS
     Route: 065
     Dates: start: 20121231
  7. GLIPIZIDE. [Concomitant]
     Active Substance: GLIPIZIDE
     Route: 048
     Dates: start: 20130101
  8. VFEND [Concomitant]
     Active Substance: VORICONAZOLE
     Route: 065
  9. K-DUR [Concomitant]
     Active Substance: POTASSIUM CHLORIDE
     Route: 065
  10. LANTUS [Concomitant]
     Active Substance: INSULIN GLARGINE
     Dosage: 20 UNITS AT BEDTIME
     Route: 065
  11. LINEZOLID. [Concomitant]
     Active Substance: LINEZOLID
     Route: 042
     Dates: start: 20130102
  12. FUROSEMIDE. [Concomitant]
     Active Substance: FUROSEMIDE
     Route: 042
     Dates: start: 20121231
  13. NORVASC [Concomitant]
     Active Substance: AMLODIPINE BESYLATE
     Route: 065
  14. METRONIDAZOLE. [Concomitant]
     Active Substance: METRONIDAZOLE
     Route: 042
     Dates: start: 20120131
  15. CELLCEPT [Concomitant]
     Active Substance: MYCOPHENOLATE MOFETIL\MYCOPHENOLATE MOFETIL HYDROCHLORIDE
     Route: 065
  16. BUPROPION [Concomitant]
     Active Substance: BUPROPION
     Route: 050
  17. INSULIN [Concomitant]
     Active Substance: INSULIN NOS
     Dosage: 20 UNITS
     Route: 065
     Dates: start: 20130103
  18. LEVOFLOXACIN. [Concomitant]
     Active Substance: LEVOFLOXACIN
     Dosage: 20 UNIT
     Route: 042
     Dates: start: 20130103
  19. MAG PLUS = MAGNESIUM OXIDE, DICALCIUM PHOSPHATE [Concomitant]
  20. LOVASTATIN. [Concomitant]
     Active Substance: LOVASTATIN
     Dosage: 2 QAM
     Route: 065
  21. WELLBUTRIN [Concomitant]
     Active Substance: BUPROPION HYDROCHLORIDE
     Route: 065
  22. PEN VK [Concomitant]
     Active Substance: PENICILLIN V POTASSIUM
     Route: 065

REACTIONS (5)
  - Respiratory failure [Fatal]
  - Hypoxia [Unknown]
  - Pyrexia [Unknown]
  - Pneumonia [Unknown]
  - Pneumonia [Unknown]

NARRATIVE: CASE EVENT DATE: 20121231
